FAERS Safety Report 7738659-3 (Version None)
Quarter: 2011Q3

REPORT INFORMATION
  Report Type: 
  Country: None (occurrence: None)
  Receive Date: 20110908
  Receipt Date: 20110830
  Transmission Date: 20111222
  Serious: Yes (Disabling, Other)
  Sender: FDA-Public Use
  Company Number: US-MERCK-0903USA04198

PATIENT
  Age: 56 Year
  Sex: Female
  Weight: 55 kg

DRUGS (10)
  1. FOSAMAX [Suspect]
     Route: 048
     Dates: start: 20001205
  2. FOSAMAX [Suspect]
     Route: 048
     Dates: end: 20001205
  3. FOSAMAX [Suspect]
     Route: 048
     Dates: start: 20001205
  4. AMITRIPTYLINE HYDROCHLORIDE [Concomitant]
     Indication: SLEEP DISORDER
     Route: 065
     Dates: start: 19950101
  5. [THERAPY UNSPECIFIED] [Concomitant]
     Indication: HYPERTENSION
     Route: 065
     Dates: start: 19990101
  6. FOSAMAX [Suspect]
     Route: 048
     Dates: end: 20051001
  7. FOSAMAX [Suspect]
     Route: 048
     Dates: end: 20051001
  8. FOSAMAX [Suspect]
     Indication: OSTEOPENIA
     Route: 048
     Dates: start: 19970101, end: 20060101
  9. FOSAMAX [Suspect]
     Indication: OSTEOPOROSIS
     Route: 048
     Dates: start: 19970101, end: 20060101
  10. FOSAMAX [Suspect]
     Route: 048
     Dates: end: 20001205

REACTIONS (39)
  - DIVERTICULUM [None]
  - TONGUE ULCERATION [None]
  - DRUG INEFFECTIVE [None]
  - FALL [None]
  - FATIGUE [None]
  - JOINT DISLOCATION [None]
  - SINUS CONGESTION [None]
  - PNEUMONIA [None]
  - OSTEOPENIA [None]
  - BACK PAIN [None]
  - GINGIVAL DISORDER [None]
  - HAEMATURIA [None]
  - HYPERTENSION [None]
  - WRIST FRACTURE [None]
  - SKIN LESION [None]
  - MUSCLE STRAIN [None]
  - BONE LOSS [None]
  - FLUSHING [None]
  - HOT FLUSH [None]
  - TOOTH INJURY [None]
  - GINGIVAL PAIN [None]
  - LOBAR PNEUMONIA [None]
  - INTERVERTEBRAL DISC DEGENERATION [None]
  - DEPRESSION [None]
  - EUSTACHIAN TUBE DYSFUNCTION [None]
  - ABDOMINAL PAIN UPPER [None]
  - RADIUS FRACTURE [None]
  - ABDOMINAL DISCOMFORT [None]
  - ULCER [None]
  - OSTEOPOROSIS [None]
  - ROAD TRAFFIC ACCIDENT [None]
  - ADVERSE DRUG REACTION [None]
  - GENERALISED ANXIETY DISORDER [None]
  - LOSS OF CONSCIOUSNESS [None]
  - ORAL INFECTION [None]
  - OSTEONECROSIS OF JAW [None]
  - CONTUSION [None]
  - JAW DISORDER [None]
  - PIGMENTATION LIP [None]
